FAERS Safety Report 4414270-7 (Version None)
Quarter: 2004Q3

REPORT INFORMATION
  Report Type: 
  Country: None (occurrence: None)
  Receive Date: 20040729
  Receipt Date: 20040716
  Transmission Date: 20050211
  Serious: Yes (Other)
  Sender: FDA-Public Use
  Company Number: 2004048988

PATIENT
  Age: 79 Year
  Sex: Male

DRUGS (3)
  1. LIPITOR [Suspect]
     Indication: DYSLIPIDAEMIA
     Dosage: 10 MG (10 MG, 1 IN 1D), ORAL
     Route: 048
     Dates: start: 20020301
  2. PROPRANOLOL [Concomitant]
  3. ACETYLSALICYLIC ACID SRT [Concomitant]

REACTIONS (2)
  - CARDIAC DISORDER [None]
  - TRIPLE VESSEL BYPASS GRAFT [None]
